FAERS Safety Report 8845726 (Version 1)
Quarter: 2012Q4

REPORT INFORMATION
  Report Type: 
  Country: US (occurrence: US)
  Receive Date: 20121017
  Receipt Date: 20121017
  Transmission Date: 20130627
  Serious: No
  Sender: FDA-Public Use
  Company Number: US-ASTRAZENECA-2012SE75814

PATIENT
  Age: 49 Year
  Sex: Female

DRUGS (6)
  1. PRILOSEC [Suspect]
     Route: 048
  2. SEROQUEL [Suspect]
     Indication: ANXIOLYTIC THERAPY
     Route: 048
     Dates: start: 2011
  3. SEROQUEL [Suspect]
     Indication: INSOMNIA
     Route: 048
     Dates: start: 2011
  4. SEROQUEL [Suspect]
     Indication: BRUXISM
     Route: 048
     Dates: start: 2011
  5. PREVACID [Suspect]
     Route: 065
  6. NEXIUM [Concomitant]

REACTIONS (6)
  - Sleep disorder due to general medical condition, insomnia type [Unknown]
  - Anxiety [Unknown]
  - Bruxism [Unknown]
  - Insomnia [Unknown]
  - Therapeutic response unexpected [Unknown]
  - Drug effect incomplete [Unknown]
